FAERS Safety Report 7669608-4 (Version None)
Quarter: 2011Q3

REPORT INFORMATION
  Report Type: 
  Country: None (occurrence: None)
  Receive Date: 20110808
  Receipt Date: 20110728
  Transmission Date: 20111222
  Serious: Yes (Hospitalization, Other)
  Sender: FDA-Public Use
  Company Number: JP-AMGEN-JPNCT2011021057

PATIENT
  Age: 78 Year
  Sex: Male
  Weight: 62 kg

DRUGS (15)
  1. PANITUMUMAB [Suspect]
     Dosage: 6 MG/KG, Q2WK
     Route: 041
     Dates: start: 20101209, end: 20101224
  2. COLONEL [Concomitant]
     Dosage: UNK
     Route: 048
  3. MYSER [Concomitant]
     Dosage: UNK
     Route: 062
  4. CAMPTOSAR [Suspect]
     Indication: COLORECTAL CANCER
     Route: 041
     Dates: start: 20100910, end: 20101224
  5. LEUCOVORIN CALCIUM [Concomitant]
     Indication: COLORECTAL CANCER
     Route: 041
     Dates: start: 20100910, end: 20101224
  6. FLUOROURACIL [Concomitant]
     Route: 041
     Dates: start: 20100910, end: 20101224
  7. PHELLOBERIN A [Concomitant]
     Dosage: UNK
     Route: 048
  8. TAIPEMIN [Concomitant]
     Dosage: UNK
     Route: 048
  9. SCORPAN [Concomitant]
     Dosage: UNK
     Route: 042
  10. HIRUDOID FORTE [Concomitant]
     Dosage: UNK
     Route: 062
  11. DRENISON [Concomitant]
     Dosage: UNK
     Route: 062
  12. ADSORBIN [Concomitant]
     Dosage: UNK
     Route: 048
  13. PANITUMUMAB [Suspect]
     Dosage: 6 MG/KG, Q2WK
     Route: 041
     Dates: start: 20100910, end: 20101105
  14. FLUOROURACIL [Concomitant]
     Indication: COLORECTAL CANCER
     Route: 040
     Dates: start: 20100910, end: 20101224
  15. ANTIHISTAMINES [Concomitant]
     Indication: PROPHYLAXIS
     Dosage: UNK
     Route: 065

REACTIONS (3)
  - CEREBRAL INFARCTION [None]
  - DIARRHOEA [None]
  - PARONYCHIA [None]
